FAERS Safety Report 4369052-1 (Version None)
Quarter: 2004Q2

REPORT INFORMATION
  Report Type: 
  Country: None (occurrence: None)
  Receive Date: 20040527
  Receipt Date: 20040518
  Transmission Date: 20050107
  Serious: Yes (Congenital Anomaly)
  Sender: FDA-Public Use
  Company Number: 04P-163-0251143-00

PATIENT
  Sex: Male

DRUGS (1)
  1. NORVIR [Suspect]
     Indication: DRUG EXPOSURE DURING PREGNANCY

REACTIONS (4)
  - ANOMALY OF EXTERNAL EAR CONGENITAL [None]
  - CONGENITAL ANOMALY OF INNER EAR [None]
  - DRUG EXPOSURE DURING PREGNANCY [None]
  - EAR CANAL STENOSIS [None]
